FAERS Safety Report 4296694-4 (Version None)
Quarter: 2004Q1

REPORT INFORMATION
  Report Type: 
  Country: None (occurrence: None)
  Receive Date: 20040126
  Receipt Date: 20031001
  Transmission Date: 20041129
  Serious: No
  Sender: FDA-Public Use
  Company Number: USA030844247

PATIENT
  Age: 7 Year
  Sex: Male
  Weight: 23 kg

DRUGS (1)
  1. STRATTERA [Suspect]
     Indication: ATTENTION DEFICIT/HYPERACTIVITY DISORDER
     Dosage: 40 MG/ IN THE MORNING
     Dates: start: 20030721

REACTIONS (4)
  - CONSTIPATION [None]
  - DYSPEPSIA [None]
  - INCREASED APPETITE [None]
  - VOMITING [None]
